FAERS Safety Report 18715350 (Version 1)
Quarter: 2021Q1

REPORT INFORMATION
  Report Type: Spontaneous
  Country: US (occurrence: US)
  Receive Date: 20210108
  Receipt Date: 20210108
  Transmission Date: 20210419
  Serious: Yes (Other)
  Sender: FDA-Public Use
  Company Number: US-BIOVITRUM-2021US0176

PATIENT
  Age: 4 Month
  Sex: Male
  Weight: 6 kg

DRUGS (16)
  1. MELATONIN [Concomitant]
     Active Substance: MELATONIN
     Dosage: 2.5MG/10ML LIQUID
  2. PRILOSEC [Concomitant]
     Active Substance: OMEPRAZOLE MAGNESIUM
     Dosage: 2.5 MG SUSPDR PKT
  3. SIMETHICONE (DIMETHICONE) [Concomitant]
     Active Substance: DIMETHICONE
     Dosage: 40MG/0.6ML DROPS SUSP
  4. PEPCID [Concomitant]
     Active Substance: FAMOTIDINE
  5. METHADONE HCL [Concomitant]
     Active Substance: METHADONE HYDROCHLORIDE
  6. NACL [Concomitant]
     Active Substance: SODIUM CHLORIDE
     Dosage: 0.9%
  7. EPINEPHRINE HCL [Concomitant]
     Active Substance: EPINEPHRINE
  8. LOVENOX [Concomitant]
     Active Substance: ENOXAPARIN SODIUM
     Dosage: 30MG/0.3ML SYRINGE
  9. ALDACTONE [Concomitant]
     Active Substance: SPIRONOLACTONE
  10. LASIX [Concomitant]
     Active Substance: FUROSEMIDE
  11. SODIUM CHLORIDE?WATER [Concomitant]
     Dosage: 0.9 % IV SOLN
  12. DIGOXIN. [Concomitant]
     Active Substance: DIGOXIN
     Dosage: 50 MCG/ML SOLUTION
  13. DIURIL [Concomitant]
     Active Substance: CHLOROTHIAZIDE
     Dosage: 250 MG/5ML ORAL SUSP
  14. SYNAGIS [Suspect]
     Active Substance: PALIVIZUMAB
     Indication: RESPIRATORY SYNCYTIAL VIRUS INFECTION
     Route: 030
     Dates: start: 20201109
  15. VALIUM [Concomitant]
     Active Substance: DIAZEPAM
  16. CLONIDINE HCL [Concomitant]
     Active Substance: CLONIDINE HYDROCHLORIDE

REACTIONS (1)
  - Heart disease congenital [Recovering/Resolving]

NARRATIVE: CASE EVENT DATE: 202012
